FAERS Safety Report 18080429 (Version 1)
Quarter: 2020Q3

REPORT INFORMATION
  Report Type: Report from Study
  Country: None (occurrence: US)
  Receive Date: 20200728
  Receipt Date: 20200728
  Transmission Date: 20201103
  Serious: Yes (Other)
  Sender: FDA-Public Use
  Company Number: US-ABBVIE-20K-163-3493014-00

PATIENT
  Sex: Female

DRUGS (1)
  1. HUMIRA [Suspect]
     Active Substance: ADALIMUMAB
     Indication: PSORIATIC ARTHROPATHY
     Route: 058

REACTIONS (4)
  - Dental restoration failure [Not Recovered/Not Resolved]
  - Temporomandibular joint syndrome [Not Recovered/Not Resolved]
  - Tooth disorder [Not Recovered/Not Resolved]
  - Endodontic procedure [Not Recovered/Not Resolved]

NARRATIVE: CASE EVENT DATE: 2020
